FAERS Safety Report 5110022-3 (Version None)
Quarter: 2006Q3

REPORT INFORMATION
  Report Type: 
  Country: None (occurrence: None)
  Receive Date: 20060921
  Receipt Date: 20060912
  Transmission Date: 20061208
  Serious: Yes (Other)
  Sender: FDA-Public Use
  Company Number: PHFR2006GB02803

PATIENT
  Age: 34 Year
  Sex: Male

DRUGS (1)
  1. CLOZARIL [Suspect]
     Indication: SCHIZOPHRENIA
     Dosage: 350MG/DAY
     Route: 048
     Dates: start: 20040801

REACTIONS (4)
  - CYANOSIS [None]
  - DYSPNOEA PAROXYSMAL NOCTURNAL [None]
  - HEART RATE INCREASED [None]
  - PALPITATIONS [None]
